FAERS Safety Report 15687010 (Version 14)
Quarter: 2021Q2

REPORT INFORMATION
  Report Type: Report from Study
  Country: IT (occurrence: IT)
  Receive Date: 20181204
  Receipt Date: 20210622
  Transmission Date: 20210716
  Serious: Yes (Other)
  Sender: FDA-Public Use
  Company Number: PHHY2018IT006575

PATIENT
  Age: 77 Year
  Sex: Female

DRUGS (27)
  1. TAFINLAR [Suspect]
     Active Substance: DABRAFENIB MESYLATE
     Dosage: UNK
     Route: 065
     Dates: start: 20200206, end: 20200310
  2. TAFINLAR [Suspect]
     Active Substance: DABRAFENIB MESYLATE
     Dosage: 300 OT
     Route: 048
     Dates: start: 20200311, end: 20200331
  3. CETIRIZINE DIHYDROCHLORIDE [Concomitant]
     Active Substance: CETIRIZINE HYDROCHLORIDE
     Indication: RASH
     Dosage: UNK (10 OT)
     Route: 048
     Dates: start: 20200125
  4. TRAMETINIB [Suspect]
     Active Substance: TRAMETINIB
     Indication: MALIGNANT MELANOMA
     Dosage: 2 MG
     Route: 048
  5. METHYLPREDNISOLONE. [Concomitant]
     Active Substance: METHYLPREDNISOLONE
     Dosage: 8 DF
     Route: 048
     Dates: start: 20200224, end: 20200301
  6. TAFINLAR [Suspect]
     Active Substance: DABRAFENIB MESYLATE
     Dosage: 300 OT
     Route: 048
     Dates: start: 20180504, end: 20190102
  7. TAFINLAR [Suspect]
     Active Substance: DABRAFENIB MESYLATE
     Dosage: 300 OT
     Route: 048
     Dates: start: 20190103, end: 20190623
  8. TRAMETINIB [Suspect]
     Active Substance: TRAMETINIB
     Dosage: 2 OT
     Route: 048
     Dates: start: 20180504, end: 20190102
  9. TRAMETINIB [Suspect]
     Active Substance: TRAMETINIB
     Dosage: 2 OT
     Route: 048
     Dates: start: 20191029, end: 20200205
  10. TAFINLAR [Suspect]
     Active Substance: DABRAFENIB MESYLATE
     Indication: MALIGNANT MELANOMA
     Dosage: 300 MG
     Route: 048
  11. TAFINLAR [Suspect]
     Active Substance: DABRAFENIB MESYLATE
     Dosage: 300 OT
     Route: 048
     Dates: start: 20180207, end: 20180404
  12. TAFINLAR [Suspect]
     Active Substance: DABRAFENIB MESYLATE
     Dosage: 300 OT
     Route: 048
     Dates: start: 20200525
  13. TRAMETINIB [Suspect]
     Active Substance: TRAMETINIB
     Dosage: 2 OT
     Route: 048
     Dates: start: 20180207, end: 20180404
  14. TRAMETINIB [Suspect]
     Active Substance: TRAMETINIB
     Dosage: 2 OT
     Route: 048
     Dates: start: 20200512, end: 20200519
  15. TAFINLAR [Suspect]
     Active Substance: DABRAFENIB MESYLATE
     Dosage: 300 OT
     Route: 048
     Dates: start: 20191029, end: 20200205
  16. TRAMETINIB [Suspect]
     Active Substance: TRAMETINIB
     Dosage: 2 OT
     Route: 048
     Dates: start: 20180412, end: 20180424
  17. TRAMETINIB [Suspect]
     Active Substance: TRAMETINIB
     Dosage: 2 OT
     Route: 048
     Dates: start: 20190627, end: 20191021
  18. EDOXABAN [Concomitant]
     Active Substance: EDOXABAN TOSYLATE
     Indication: ATRIAL FIBRILLATION
     Dosage: 30 UNK
     Route: 048
     Dates: start: 20210115
  19. METHYLPREDNISOLONE. [Concomitant]
     Active Substance: METHYLPREDNISOLONE
     Indication: RASH
     Dosage: 16 OT
     Route: 048
     Dates: start: 20200213, end: 20200223
  20. TAFINLAR [Suspect]
     Active Substance: DABRAFENIB MESYLATE
     Dosage: 300 OT
     Route: 048
     Dates: start: 20180411, end: 20180424
  21. TRAMETINIB [Suspect]
     Active Substance: TRAMETINIB
     Dosage: UNK
     Route: 065
     Dates: start: 20180405, end: 20180411
  22. TRAMETINIB [Suspect]
     Active Substance: TRAMETINIB
     Dosage: 2 OT
     Route: 048
     Dates: start: 20200311, end: 20200331
  23. TRAMETINIB [Suspect]
     Active Substance: TRAMETINIB
     Dosage: 2 OT
     Route: 048
     Dates: start: 20200525
  24. METHYLPREDNISOLONE. [Concomitant]
     Active Substance: METHYLPREDNISOLONE
     Dosage: 8 OT
     Route: 048
     Dates: start: 20200414
  25. TAFINLAR [Suspect]
     Active Substance: DABRAFENIB MESYLATE
     Dosage: 300 OT
     Route: 048
     Dates: start: 20190627, end: 20191021
  26. TAFINLAR [Suspect]
     Active Substance: DABRAFENIB MESYLATE
     Dosage: 300 OT
     Route: 048
     Dates: start: 20200512, end: 20200519
  27. TRAMETINIB [Suspect]
     Active Substance: TRAMETINIB
     Dosage: 2 OT
     Route: 048
     Dates: start: 20190103, end: 20190623

REACTIONS (32)
  - Hypokalaemia [Recovered/Resolved]
  - Pruritus [Recovered/Resolved]
  - Asthenia [Recovered/Resolved]
  - Blood alkaline phosphatase increased [Not Recovered/Not Resolved]
  - Rash [Recovered/Resolved]
  - Hypomagnesaemia [Recovered/Resolved]
  - Gamma-glutamyltransferase increased [Not Recovered/Not Resolved]
  - Anaemia [Recovered/Resolved]
  - Hypercholesterolaemia [Not Recovered/Not Resolved]
  - Asthenia [Not Recovered/Not Resolved]
  - Hyperuricaemia [Recovered/Resolved]
  - Blood bilirubin increased [Recovered/Resolved]
  - Hyperuricaemia [Recovered/Resolved]
  - Rash [Recovered/Resolved]
  - Hypokalaemia [Recovered/Resolved]
  - Nausea [Recovered/Resolved]
  - Hypokalaemia [Recovered/Resolved]
  - Hypokalaemia [Recovered/Resolved]
  - Blood bilirubin increased [Recovered/Resolved]
  - Blood bilirubin increased [Recovered/Resolved]
  - Cough [Not Recovered/Not Resolved]
  - Hypocalcaemia [Not Recovered/Not Resolved]
  - Hypertension [Not Recovered/Not Resolved]
  - Hypokalaemia [Recovered/Resolved]
  - Nausea [Recovered/Resolved]
  - Dyspnoea [Not Recovered/Not Resolved]
  - Leukopenia [Recovered/Resolved]
  - Hypertransaminasaemia [Not Recovered/Not Resolved]
  - Dental caries [Recovered/Resolved]
  - Non-cardiac chest pain [Not Recovered/Not Resolved]
  - Neutropenia [Recovered/Resolved]
  - Blood uric acid increased [Recovered/Resolved]

NARRATIVE: CASE EVENT DATE: 20180307
